FAERS Safety Report 9181196 (Version 2)
Quarter: 2013Q1

REPORT INFORMATION
  Report Type: Spontaneous
  Country: US (occurrence: US)
  Receive Date: 20130322
  Receipt Date: 20130322
  Transmission Date: 20140127
  Serious: No
  Sender: FDA-Public Use
  Company Number: US-MYLANLABS-2012S1018493

PATIENT
  Age: 82 Year
  Sex: Female
  Weight: 57.15 kg

DRUGS (9)
  1. EMSAM [Suspect]
     Indication: DEPRESSION
     Dosage: QD
     Route: 062
     Dates: start: 201208, end: 20120905
  2. EMSAM [Suspect]
     Indication: DEPRESSION
     Dosage: QD
     Route: 062
     Dates: start: 201208, end: 20120905
  3. EMSAM [Suspect]
     Indication: DEPRESSION
  4. EMSAM [Suspect]
     Indication: DEPRESSION
     Dosage: CHANGES DAILY
     Route: 062
     Dates: start: 20120905
  5. ATIVAN [Concomitant]
     Indication: ANXIETY
     Dates: start: 201205
  6. SEROQUEL [Concomitant]
     Indication: BIPOLAR DISORDER
  7. BLOOD PRESSURE MEDICATION [Concomitant]
     Indication: BLOOD PRESSURE INCREASED
     Route: 048
  8. THYROID SUPPLEMENT [Concomitant]
     Indication: HYPOTHYROIDISM
     Route: 048
  9. CHOLESTEROL MEDICATION [Concomitant]
     Indication: BLOOD CHOLESTEROL INCREASED
     Route: 048

REACTIONS (5)
  - Drug ineffective [Not Recovered/Not Resolved]
  - Depressed mood [Not Recovered/Not Resolved]
  - Emotional distress [Not Recovered/Not Resolved]
  - Fear [Not Recovered/Not Resolved]
  - Anxiety [Not Recovered/Not Resolved]
